FAERS Safety Report 12348671 (Version 3)
Quarter: 2016Q2

REPORT INFORMATION
  Report Type: Spontaneous
  Country: US (occurrence: US)
  Receive Date: 20160509
  Receipt Date: 20160517
  Transmission Date: 20160815
  Serious: Yes (Other)
  Sender: FDA-Public Use
  Company Number: US-BAYER-2016-086757

PATIENT
  Age: 59 Year
  Sex: Female

DRUGS (2)
  1. CLIMARA PRO [Suspect]
     Active Substance: ESTRADIOL\LEVONORGESTREL
     Indication: MENOPAUSE
     Dosage: UNK
     Route: 062
  2. CLIMARA PRO [Suspect]
     Active Substance: ESTRADIOL\LEVONORGESTREL
     Indication: MENOPAUSE
     Dosage: UNK
     Dates: start: 2009

REACTIONS (8)
  - Skin burning sensation [Not Recovered/Not Resolved]
  - Pruritus [Unknown]
  - Emotional distress [Not Recovered/Not Resolved]
  - Product adhesion issue [None]
  - Liver disorder [None]
  - Application site scab [None]
  - Application site ulcer [None]
  - Inflammation [None]

NARRATIVE: CASE EVENT DATE: 20160502
